FAERS Safety Report 8048741-1 (Version None)
Quarter: 2012Q1

REPORT INFORMATION
  Report Type: 
  Country: None (occurrence: None)
  Receive Date: 20120117
  Receipt Date: 20120109
  Transmission Date: 20120608
  Serious: Yes (Other)
  Sender: FDA-Public Use
  Company Number: US-BAYER-2011-031379

PATIENT
  Age: 32 Year
  Sex: Female
  Weight: 74.83 kg

DRUGS (5)
  1. YASMIN [Suspect]
     Indication: PREMENSTRUAL SYNDROME
     Dosage: UNK
     Dates: start: 20020101, end: 20080401
  2. TOPAMAX [Concomitant]
     Dosage: UNK
     Route: 048
     Dates: start: 20050101
  3. PREDNISONE [Concomitant]
     Dosage: 5 MG, UNK
     Route: 048
  4. YASMIN [Suspect]
     Indication: ACNE
  5. YASMIN [Suspect]
     Indication: CONTRACEPTION

REACTIONS (7)
  - PAIN [None]
  - NAUSEA [None]
  - INTRACRANIAL VENOUS SINUS THROMBOSIS [None]
  - CEREBROVASCULAR DISORDER [None]
  - PHOTOSENSITIVITY REACTION [None]
  - VISUAL IMPAIRMENT [None]
  - HEADACHE [None]
